FAERS Safety Report 8068447-2 (Version None)
Quarter: 2012Q1

REPORT INFORMATION
  Report Type: 
  Country: None (occurrence: None)
  Receive Date: 20120124
  Receipt Date: 20111027
  Transmission Date: 20120608
  Serious: Yes (Other)
  Sender: FDA-Public Use
  Company Number: US-AMGEN-USASP2011055830

PATIENT
  Sex: Female

DRUGS (3)
  1. PNEUMOVAX 23 [Concomitant]
  2. PROLIA [Suspect]
     Indication: OSTEOPOROSIS POSTMENOPAUSAL
     Dosage: 60 MG, Q6MO
  3. FLUVAX                             /00027001/ [Concomitant]

REACTIONS (1)
  - CELLULITIS [None]
